FAERS Safety Report 11874564 (Version 1)
Quarter: 2015Q4

REPORT INFORMATION
  Report Type: Spontaneous
  Country: US (occurrence: None)
  Receive Date: 20151228
  Receipt Date: 20151228
  Transmission Date: 20160305
  Serious: Yes (Disabling, Other)
  Sender: FDA-Public Use
  Company Number: None

PATIENT
  Age: 56 Year
  Sex: Female
  Weight: 77.11 kg

DRUGS (4)
  1. CRESTOR [Concomitant]
     Active Substance: ROSUVASTATIN CALCIUM
  2. NEOSPORIN [Suspect]
     Active Substance: BACITRACIN ZINC\NEOMYCIN SULFATE\POLYMYXIN B SULFATE
     Indication: MOLE EXCISION
     Dosage: ENOUGH TO COVER 1/2^ OF STITCH, TWICE DAILY, APPLIED TO A SURFACE, USUALLY THE SKIN
     Dates: start: 20150925, end: 20151020
  3. COQ [Concomitant]
  4. VITIAMIN D [Concomitant]

REACTIONS (4)
  - Deafness [None]
  - Tinnitus [None]
  - Hypersensitivity [None]
  - Skin irritation [None]

NARRATIVE: CASE EVENT DATE: 20150925
